FAERS Safety Report 6107025-9 (Version None)
Quarter: 2009Q1

REPORT INFORMATION
  Report Type: 
  Country: None (occurrence: None)
  Receive Date: 20090305
  Receipt Date: 20090305
  Transmission Date: 20090719
  Serious: No
  Sender: FDA-Public Use
  Company Number: None

PATIENT
  Sex: Male
  Weight: 114.3065 kg

DRUGS (2)
  1. SIMVASTATIN [Suspect]
     Indication: CORONARY ARTERY DISEASE
  2. SIMVASTATIN [Suspect]
     Indication: HYPERLIPIDAEMIA

REACTIONS (2)
  - ARTHRALGIA [None]
  - MUSCLE SPASMS [None]
